FAERS Safety Report 5185099-X (Version None)
Quarter: 2006Q4

REPORT INFORMATION
  Report Type: 
  Country: None (occurrence: None)
  Receive Date: 20061220
  Receipt Date: 20060531
  Transmission Date: 20070319
  Serious: No
  Sender: FDA-Public Use
  Company Number: US-GLAXOSMITHKLINE-A0607434A

PATIENT
  Age: 43 Year
  Sex: Female

DRUGS (2)
  1. NICODERM CQ [Suspect]
     Dates: start: 20060527
  2. NICODERM CQ [Suspect]

REACTIONS (10)
  - ANXIETY [None]
  - CRYING [None]
  - DEPRESSION [None]
  - DIZZINESS [None]
  - FATIGUE [None]
  - FEELING ABNORMAL [None]
  - INSOMNIA [None]
  - MENTAL IMPAIRMENT [None]
  - NERVOUSNESS [None]
  - NICOTINE DEPENDENCE [None]
